FAERS Safety Report 10155932 (Version 1)
Quarter: 2014Q2

REPORT INFORMATION
  Report Type: Spontaneous
  Country: FR (occurrence: FR)
  Receive Date: 20140506
  Receipt Date: 20140506
  Transmission Date: 20141212
  Serious: Yes (Hospitalization)
  Sender: FDA-Public Use
  Company Number: FR-ABBVIE-14P-056-1234545-00

PATIENT
  Age: 34 Year
  Sex: Female

DRUGS (4)
  1. DEPAKOTE [Suspect]
     Indication: INTENTIONAL OVERDOSE
     Route: 048
     Dates: start: 20140403, end: 20140403
  2. VENLAFAXINE [Suspect]
     Indication: INTENTIONAL OVERDOSE
     Route: 048
     Dates: start: 20140403, end: 20140403
  3. DIAZEPAM [Suspect]
     Indication: INTENTIONAL OVERDOSE
     Route: 048
     Dates: start: 20140403, end: 20140403
  4. LOXAPAC [Suspect]
     Indication: INTENTIONAL OVERDOSE
     Route: 048
     Dates: start: 20140403, end: 20140403

REACTIONS (4)
  - Hepatocellular injury [Unknown]
  - Lactic acidosis [Unknown]
  - Rhabdomyolysis [Unknown]
  - Somnolence [Unknown]
